FAERS Safety Report 6928774-6 (Version None)
Quarter: 2010Q3

REPORT INFORMATION
  Report Type: 
  Country: None (occurrence: None)
  Receive Date: 20100817
  Receipt Date: 20100812
  Transmission Date: 20110219
  Serious: Yes (Life-Threatening)
  Sender: FDA-Public Use
  Company Number: US-BRISTOL-MYERS SQUIBB COMPANY-15237431

PATIENT

DRUGS (1)
  1. IXEMPRA KIT [Suspect]

REACTIONS (3)
  - DYSPHAGIA [None]
  - ERYTHEMA [None]
  - PHARYNGEAL OEDEMA [None]
